FAERS Safety Report 14844907 (Version 1)
Quarter: 2018Q2

REPORT INFORMATION
  Report Type: Report from Study
  Country: JP (occurrence: JP)
  Receive Date: 20180504
  Receipt Date: 20180504
  Transmission Date: 20180711
  Serious: Yes (Hospitalization, Disabling, Other)
  Sender: FDA-Public Use
  Company Number: JP-BRISTOL-MYERS SQUIBB COMPANY-BMS-2017-117611

PATIENT
  Age: 82 Year
  Sex: Male
  Weight: 62 kg

DRUGS (8)
  1. CARVEDILOL. [Concomitant]
     Active Substance: CARVEDILOL
     Indication: CARDIAC FAILURE
     Dosage: 10 MG, UNK
     Route: 048
     Dates: start: 20170725
  2. SELARA [Concomitant]
     Active Substance: EPLERENONE
     Indication: CARDIAC FAILURE
     Dosage: 25 MG, UNK
     Route: 048
     Dates: start: 20170728
  3. NEXIUM [Concomitant]
     Active Substance: ESOMEPRAZOLE MAGNESIUM
     Indication: GASTRIC ULCER
     Dosage: 10 MG, UNK
     Route: 048
     Dates: start: 20170725
  4. ATORVASTATIN CALCIUM. [Concomitant]
     Active Substance: ATORVASTATIN CALCIUM
     Indication: DYSLIPIDAEMIA
     Dosage: 10 MG, UNK
     Route: 048
     Dates: start: 20170725
  5. ACECOL                             /01277402/ [Concomitant]
     Active Substance: TEMOCAPRIL HYDROCHLORIDE
     Indication: CARDIAC FAILURE
     Dosage: 2 MG, UNK
     Route: 048
     Dates: start: 20170725
  6. APIXABAN [Suspect]
     Active Substance: APIXABAN
     Indication: THROMBOSIS PROPHYLAXIS
     Dosage: 10 MG, UNK
     Route: 048
     Dates: start: 201707
  7. FUROSEMIDE. [Concomitant]
     Active Substance: FUROSEMIDE
     Indication: CARDIAC FAILURE
     Dosage: 20 MG, UNK
     Route: 048
     Dates: start: 20170725
  8. ASPIRIN. [Suspect]
     Active Substance: ASPIRIN
     Indication: THROMBOSIS PROPHYLAXIS
     Dosage: 100 MG, UNK
     Route: 048
     Dates: start: 20170725

REACTIONS (3)
  - Spinal cord injury cervical [Not Recovered/Not Resolved]
  - Fall [Not Recovered/Not Resolved]
  - Anaemia [Not Recovered/Not Resolved]

NARRATIVE: CASE EVENT DATE: 20171221
